FAERS Safety Report 10420724 (Version 1)
Quarter: 2014Q1

REPORT INFORMATION
  Report Type: Spontaneous
  Country: US (occurrence: None)
  Receive Date: 20130916
  Receipt Date: 20130916
  Transmission Date: 20141002
  Serious: Yes (Hospitalization)
  Sender: FDA-Public Use
  Company Number: JPI-P-024900

PATIENT
  Age: 27 Year
  Sex: Female
  Weight: 52.16 kg

DRUGS (3)
  1. XYREM (500 MILLIGRAM/MILLILITERS, SOLUTION) (SODIUM OXYBATE) [Suspect]
     Indication: SOMNOLENCE
     Dosage: 4.5GM (2.25 GM, 2 IN 1 D), ORAL
     Route: 048
     Dates: start: 20120416, end: 2012
  2. DULOXETINE HYDROCHLORIDE [Concomitant]
  3. LISDEXAMFETAMINE DIMESYLATE [Concomitant]

REACTIONS (3)
  - Depression [None]
  - Pain in extremity [None]
  - Drug dose omission [None]
